FAERS Safety Report 8524698-1 (Version None)
Quarter: 2012Q3

REPORT INFORMATION
  Report Type: 
  Country: None (occurrence: None)
  Receive Date: 20120720
  Receipt Date: 20120711
  Transmission Date: 20120928
  Serious: Yes (Death, Hospitalization, Other)
  Sender: FDA-Public Use
  Company Number: DE-ROCHE-1088337

PATIENT
  Age: 50 Year
  Sex: Male

DRUGS (7)
  1. DIAZEPAM [Suspect]
     Indication: DEPRESSION
     Route: 048
     Dates: start: 20111101, end: 20120131
  2. LAMOTRIGINE [Concomitant]
     Route: 048
     Dates: start: 20120123, end: 20120131
  3. DIPYRONE TAB [Concomitant]
     Route: 048
     Dates: start: 20111130, end: 20120131
  4. DIAZEPAM [Suspect]
     Route: 048
     Dates: start: 20120124, end: 20120131
  5. DISTRANEURIN [Suspect]
     Indication: PRODUCT USED FOR UNKNOWN INDICATION
     Route: 048
     Dates: start: 20120122, end: 20120127
  6. DISTRANEURIN [Suspect]
     Route: 048
     Dates: start: 20120128, end: 20120131
  7. LAMOTRIGINE [Concomitant]
     Route: 048
     Dates: start: 20111214, end: 20120122

REACTIONS (2)
  - RESPIRATORY DEPRESSION [None]
  - CARDIAC FAILURE [None]
